FAERS Safety Report 15665731 (Version 4)
Quarter: 2019Q1

REPORT INFORMATION
  Report Type: Report from Study
  Country: US (occurrence: US)
  Receive Date: 20181128
  Receipt Date: 20190205
  Transmission Date: 20190417
  Serious: Yes (Other)
  Sender: FDA-Public Use
  Company Number: PHEH2018US050020

PATIENT
  Sex: Female
  Weight: 69.39 kg

DRUGS (1)
  1. COSENTYX [Suspect]
     Active Substance: SECUKINUMAB
     Indication: PSORIATIC ARTHROPATHY
     Dosage: 150 MG, QMO
     Route: 058
     Dates: start: 201810

REACTIONS (10)
  - Psoriatic arthropathy [Unknown]
  - Dry skin [Unknown]
  - Pain [Unknown]
  - Pruritus generalised [Unknown]
  - Constipation [Unknown]
  - Psoriasis [Unknown]
  - Dizziness [Unknown]
  - Nausea [Unknown]
  - Cardiac murmur [Unknown]
  - Drug effect incomplete [Unknown]
